FAERS Safety Report 4360964-1 (Version None)
Quarter: 2004Q2

REPORT INFORMATION
  Report Type: 
  Country: None (occurrence: None)
  Receive Date: 20040519
  Receipt Date: 20040519
  Transmission Date: 20050107
  Serious: Yes (Death, Life-Threatening)
  Sender: FDA-Public Use
  Company Number: None

PATIENT
  Sex: Female

DRUGS (3)
  1. THALIDOMIDE 50MG [Suspect]
     Indication: METASTATIC MALIGNANT MELANOMA
     Dosage: 200 MG PO QD
     Route: 048
     Dates: start: 20040426
  2. PROLEUKIN [Suspect]
     Indication: METASTATIC MALIGNANT MELANOMA
     Dosage: 58 MILLION UNITS Q8 HOURS
     Dates: start: 20040426
  3. INTRLEUKIN 2 [Suspect]

REACTIONS (6)
  - CATHETER RELATED INFECTION [None]
  - DYSPNOEA [None]
  - PNEUMONIA STAPHYLOCOCCAL [None]
  - RESPIRATORY FAILURE [None]
  - STAPHYLOCOCCAL INFECTION [None]
  - STAPHYLOCOCCAL SEPSIS [None]
